FAERS Safety Report 11896840 (Version 1)
Quarter: 2016Q1

REPORT INFORMATION
  Report Type: Spontaneous
  Country: US (occurrence: US)
  Receive Date: 20160107
  Receipt Date: 20160107
  Transmission Date: 20160526
  Serious: No
  Sender: FDA-Public Use
  Company Number: US-ALLERGAN-1515704US

PATIENT
  Age: 17 Year
  Sex: Female
  Weight: 52.15 kg

DRUGS (2)
  1. ACZONE [Suspect]
     Active Substance: DAPSONE
     Indication: ACNE
     Dosage: UNK, BID
     Route: 061
     Dates: start: 201506, end: 201507
  2. ACZONE [Suspect]
     Active Substance: DAPSONE
     Indication: ACNE

REACTIONS (2)
  - Drug ineffective [Unknown]
  - Acne [Recovered/Resolved]

NARRATIVE: CASE EVENT DATE: 201506
